FAERS Safety Report 10729699 (Version 1)
Quarter: 2015Q1

REPORT INFORMATION
  Report Type: Spontaneous
  Country: US (occurrence: None)
  Receive Date: 20150121
  Receipt Date: 20150121
  Transmission Date: 20150721
  Serious: Yes (Hospitalization)
  Sender: FDA-Public Use
  Company Number: None

PATIENT
  Age: 48 Year
  Sex: Female

DRUGS (5)
  1. IRON [Concomitant]
     Active Substance: IRON
  2. RITUXAN [Suspect]
     Active Substance: RITUXIMAB
     Indication: LYMPHOMA
     Dosage: UNK
  3. ARGININE [Concomitant]
     Active Substance: ARGININE
  4. ALLOPURINAL [Concomitant]
  5. LASIX [Concomitant]
     Active Substance: FUROSEMIDE

REACTIONS (4)
  - Blood pressure increased [None]
  - Tumour lysis syndrome [None]
  - Chills [None]
  - Pyrexia [None]

NARRATIVE: CASE EVENT DATE: 20150112
